FAERS Safety Report 13910435 (Version 1)
Quarter: 2017Q3

REPORT INFORMATION
  Report Type: Spontaneous
  Country: US (occurrence: US)
  Receive Date: 20170825
  Receipt Date: 20170825
  Transmission Date: 20171127
  Serious: Yes (Other)
  Sender: FDA-Public Use
  Company Number: None

PATIENT
  Age: 31 Year
  Sex: Female
  Weight: 67.5 kg

DRUGS (1)
  1. MIRENA [Suspect]
     Active Substance: LEVONORGESTREL
     Indication: CONTRACEPTION
     Dates: start: 20161001, end: 20170816

REACTIONS (4)
  - Movement disorder [None]
  - Ovarian cyst [None]
  - Muscle spasms [None]
  - Amenorrhoea [None]

NARRATIVE: CASE EVENT DATE: 20170801
